FAERS Safety Report 7920191-5 (Version None)
Quarter: 2011Q4

REPORT INFORMATION
  Report Type: 
  Country: None (occurrence: None)
  Receive Date: 20111117
  Receipt Date: 20111114
  Transmission Date: 20120403
  Serious: Yes (Congenital Anomaly, Other)
  Sender: FDA-Public Use
  Company Number: US-PFIZER INC-2011279466

PATIENT
  Sex: Female

DRUGS (2)
  1. SERTRALINE HYDROCHLORIDE [Suspect]
     Indication: DEPRESSION
     Dosage: UNK
     Route: 064
  2. ZOLOFT [Suspect]
     Indication: DEPRESSION
     Dosage: UNK
     Route: 064

REACTIONS (9)
  - FINE MOTOR DELAY [None]
  - PULMONARY VALVE STENOSIS [None]
  - GROSS MOTOR DELAY [None]
  - ATRIAL SEPTAL DEFECT [None]
  - SPEECH DISORDER DEVELOPMENTAL [None]
  - HYPOTONIA [None]
  - GASTROOESOPHAGEAL REFLUX DISEASE [None]
  - MATERNAL EXPOSURE TIMING UNSPECIFIED [None]
  - EAR INFECTION [None]
